FAERS Safety Report 8230215-6 (Version None)
Quarter: 2012Q1

REPORT INFORMATION
  Report Type: 
  Country: None (occurrence: None)
  Receive Date: 20120321
  Receipt Date: 20120321
  Transmission Date: 20120608
  Serious: Yes (Other)
  Sender: FDA-Public Use
  Company Number: None

PATIENT
  Age: 47 Year
  Sex: Female

DRUGS (9)
  1. LEXAPRO [Concomitant]
  2. FISH OIL (FISH OIL) [Concomitant]
  3. CRESTOR [Concomitant]
  4. MULTIVITAMIN /00097801/(ASCORBIC ACID, CALCIUM PANTOTHENATE, ERGOCALCI [Concomitant]
  5. EXFORGE /01634301/ (AMLODIPINE, VALSARTAN) [Concomitant]
  6. CREST 3D WHITE WHITESTRIPS, 2 HOUR (CONT.) STRENGTH: HYDROGEN PEROXIDE [Suspect]
     Dosage: 1 APPLICATION INTRAORAL
     Route: 048
  7. FLEXERIL [Concomitant]
  8. SYNTHROID [Concomitant]
  9. NEXIUM [Concomitant]

REACTIONS (14)
  - LEUKOPLAKIA [None]
  - GINGIVAL DISORDER [None]
  - GINGIVAL RECESSION [None]
  - BONE LOSS [None]
  - PERIODONTITIS [None]
  - GINGIVAL EROSION [None]
  - GINGIVAL PAIN [None]
  - GINGIVAL DISCOLOURATION [None]
  - ORAL MUCOSAL EXFOLIATION [None]
  - GINGIVAL ULCERATION [None]
  - GINGIVAL INFECTION [None]
  - GINGIVITIS [None]
  - CHEILITIS [None]
  - CHEMICAL BURN OF GASTROINTESTINAL TRACT [None]
